FAERS Safety Report 13007967 (Version 1)
Quarter: 2016Q4

REPORT INFORMATION
  Report Type: Report from Study
  Country: FR (occurrence: FR)
  Receive Date: 20161208
  Receipt Date: 20161208
  Transmission Date: 20170207
  Serious: Yes (Other)
  Sender: FDA-Public Use
  Company Number: FR-AMGEN-FRANI2016148003

PATIENT
  Age: 74 Year
  Sex: Female

DRUGS (8)
  1. CARFILZOMIB [Suspect]
     Active Substance: CARFILZOMIB
     Indication: PLASMA CELL MYELOMA
     Dosage: 20/27 MG/M2, UNK
     Route: 065
     Dates: start: 20160704, end: 2016
  2. CARFILZOMIB [Suspect]
     Active Substance: CARFILZOMIB
     Dosage: 32 MG, ON DAY ONE, TWO, EIGHT, NINE, FIFTEEN, AND SIXTEEN
     Route: 042
     Dates: start: 20160720
  3. LENALIDOMIDE [Suspect]
     Active Substance: LENALIDOMIDE
     Dosage: 5 UNK, UNK
     Route: 048
     Dates: start: 2016, end: 2016
  4. LENALIDOMIDE [Suspect]
     Active Substance: LENALIDOMIDE
     Dosage: 20 UNK, UNK
     Route: 048
     Dates: start: 20160720
  5. DEXAMETHASONE. [Concomitant]
     Active Substance: DEXAMETHASONE
     Indication: PLASMA CELL MYELOMA
     Dosage: UNK
     Dates: start: 20160704, end: 2016
  6. GRANOCYTE [Concomitant]
     Active Substance: LENOGRASTIM
     Dosage: 34 UI, UNK, 2 TIMES/WK
     Route: 058
     Dates: start: 20161005
  7. LENALIDOMIDE [Suspect]
     Active Substance: LENALIDOMIDE
     Indication: PLASMA CELL MYELOMA
     Dosage: UNK
     Route: 048
     Dates: start: 20160704, end: 2016
  8. DEXAMETHASONE. [Concomitant]
     Active Substance: DEXAMETHASONE
     Dosage: 40 MG, UNK
     Route: 048
     Dates: start: 20160720

REACTIONS (2)
  - Cytopenia [Recovered/Resolved]
  - Weight decreased [Recovered/Resolved]

NARRATIVE: CASE EVENT DATE: 20161005
